FAERS Safety Report 19739719 (Version 2)
Quarter: 2021Q3

REPORT INFORMATION
  Report Type: Spontaneous
  Country: US (occurrence: US)
  Receive Date: 20210823
  Receipt Date: 20210824
  Transmission Date: 20211014
  Serious: Yes (Life-Threatening, Other)
  Sender: FDA-Public Use
  Company Number: US-CELGENEUS-USA-20210805534

PATIENT
  Sex: Male

DRUGS (1)
  1. REVLIMID [Suspect]
     Active Substance: LENALIDOMIDE
     Indication: PLASMA CELL MYELOMA
     Dosage: 25 MILLIGRAM
     Route: 048
     Dates: start: 201902

REACTIONS (7)
  - Nausea [Unknown]
  - Diarrhoea [Unknown]
  - Depression [Unknown]
  - Epistaxis [Unknown]
  - Vomiting [Unknown]
  - Haemorrhage [Unknown]
  - Anxiety [Unknown]
